FAERS Safety Report 6693329-8 (Version None)
Quarter: 2010Q2

REPORT INFORMATION
  Report Type: 
  Country: None (occurrence: None)
  Receive Date: 20100420
  Receipt Date: 20100407
  Transmission Date: 20101027
  Serious: Yes (Hospitalization)
  Sender: FDA-Public Use
  Company Number: 232683J10USA

PATIENT
  Age: 35 Year
  Sex: Female

DRUGS (3)
  1. REBIF [Suspect]
     Indication: MULTIPLE SCLEROSIS
     Dosage: 22 MCG, 3 IN 1 WK, SUBCUTANEOUS
     Route: 058
     Dates: start: 20070101, end: 20070101
  2. DEPAKOTE [Concomitant]
  3. TOPAMAX [Concomitant]

REACTIONS (4)
  - CEREBROVASCULAR ACCIDENT [None]
  - DEMENTIA [None]
  - INJECTION SITE ERYTHEMA [None]
  - MULTIPLE SCLEROSIS RELAPSE [None]
